FAERS Safety Report 12275430 (Version 2)
Quarter: 2016Q2

REPORT INFORMATION
  Report Type: Spontaneous
  Country: US (occurrence: US)
  Receive Date: 20160415
  Receipt Date: 20160512
  Transmission Date: 20160815
  Serious: No
  Sender: FDA-Public Use
  Company Number: US-UCBSA-2015036128

PATIENT
  Sex: Female
  Weight: 58.9 kg

DRUGS (10)
  1. NEUPRO [Suspect]
     Active Substance: ROTIGOTINE
     Dosage: 3 MG
  2. NEUPRO [Suspect]
     Active Substance: ROTIGOTINE
     Dosage: 5MG
  3. DOXYCYCLINE. [Suspect]
     Active Substance: DOXYCYCLINE
     Indication: ROSACEA
     Dosage: 100MG ONCE OR TWICE A DAY FOR 10 DAYS AS NEEDED
  4. NEUPRO [Suspect]
     Active Substance: ROTIGOTINE
     Indication: PARKINSON^S DISEASE
     Dosage: 1 MG
     Dates: start: 20121030
  5. NEUPRO [Suspect]
     Active Substance: ROTIGOTINE
     Dosage: 8MG
  6. ARMOUR THYROID [Concomitant]
     Active Substance: THYROID, PORCINE
     Indication: PRODUCT USED FOR UNKNOWN INDICATION
     Dosage: 90 MG, ONCE DAILY (QD)
     Route: 048
     Dates: start: 2010
  7. NEUPRO [Suspect]
     Active Substance: ROTIGOTINE
     Dosage: 2 MG
  8. NEUPRO [Suspect]
     Active Substance: ROTIGOTINE
     Dosage: 4MG
  9. NEUPRO [Suspect]
     Active Substance: ROTIGOTINE
     Dosage: 7MG
  10. NEUPRO [Suspect]
     Active Substance: ROTIGOTINE
     Dosage: 6MG

REACTIONS (1)
  - Photopsia [Not Recovered/Not Resolved]
